FAERS Safety Report 11105253 (Version 2)
Quarter: 2016Q4

REPORT INFORMATION
  Report Type: Report from Study
  Country: US (occurrence: US)
  Receive Date: 20150511
  Receipt Date: 20161213
  Transmission Date: 20170206
  Serious: No
  Sender: FDA-Public Use
  Company Number: US-009507513-1505USA003202

PATIENT
  Age: 21 Year
  Sex: Female
  Weight: 78.91 kg

DRUGS (2)
  1. IMPLANON [Suspect]
     Active Substance: ETONOGESTREL
     Dosage: ONE IMPLANT
     Route: 059
     Dates: start: 20110819, end: 20150507
  2. IMPLANON [Suspect]
     Active Substance: ETONOGESTREL
     Dosage: ONE IMPLANT
     Route: 059
     Dates: start: 20150507, end: 20161111

REACTIONS (6)
  - Medical device removal [Recovered/Resolved]
  - Product use issue [Unknown]
  - Acne [Unknown]
  - Difficulty removing drug implant [Recovered/Resolved]
  - Menstruation irregular [Unknown]
  - Medical device removal [Recovered/Resolved]

NARRATIVE: CASE EVENT DATE: 20140820
